FAERS Safety Report 16983412 (Version 22)
Quarter: 2025Q3

REPORT INFORMATION
  Report Type: Report from Study
  Country: US (occurrence: US)
  Receive Date: 20191101
  Receipt Date: 20250919
  Transmission Date: 20251021
  Serious: Yes (Hospitalization, Other)
  Sender: TAKEDA
  Company Number: US-SHIRE-US201936849

PATIENT
  Age: 77 Year
  Sex: Female
  Weight: 81 kg

DRUGS (21)
  1. HUMAN IMMUNOGLOBULIN G [Suspect]
     Active Substance: HUMAN IMMUNOGLOBULIN G
     Indication: Immunodeficiency common variable
     Dosage: 10 GRAM, 1/WEEK
     Dates: start: 20160122
  2. HUMAN IMMUNOGLOBULIN G [Suspect]
     Active Substance: HUMAN IMMUNOGLOBULIN G
     Dosage: 10 GRAM, 1/WEEK
  3. DIPHENHYDRAMINE [Concomitant]
     Active Substance: DIPHENHYDRAMINE
  4. CLARITHROMYCIN [Concomitant]
     Active Substance: CLARITHROMYCIN
     Indication: Sinusitis
  5. PEPPERMINT OIL [Concomitant]
     Active Substance: PEPPERMINT OIL
  6. PLAQUENIL [Concomitant]
     Active Substance: HYDROXYCHLOROQUINE SULFATE
  7. PREDNISONE [Concomitant]
     Active Substance: PREDNISONE
  8. DIOVAN [Concomitant]
     Active Substance: VALSARTAN
  9. PREMARIN [Concomitant]
     Active Substance: ESTROGENS, CONJUGATED
  10. PRAVASTATIN SODIUM [Concomitant]
     Active Substance: PRAVASTATIN SODIUM
  11. ZITHROMAX [Concomitant]
     Active Substance: AZITHROMYCIN DIHYDRATE
  12. ASPIRIN [Concomitant]
     Active Substance: ASPIRIN
  13. ESTAZOLAM [Concomitant]
     Active Substance: ESTAZOLAM
  14. MEDROL [Concomitant]
     Active Substance: METHYLPREDNISOLONE
  15. EPINEPHRINE [Concomitant]
     Active Substance: EPINEPHRINE
  16. ACETAMINOPHEN [Concomitant]
     Active Substance: ACETAMINOPHEN
  17. Lmx [Concomitant]
  18. PANTOPRAZOLE SODIUM [Concomitant]
     Active Substance: PANTOPRAZOLE SODIUM
  19. ZITHROMAX [Concomitant]
     Active Substance: AZITHROMYCIN DIHYDRATE
  20. DIPHENHYDRAMINE HYDROCHLORIDE [Concomitant]
     Active Substance: DIPHENHYDRAMINE HYDROCHLORIDE
  21. ASPIRIN [Concomitant]
     Active Substance: ASPIRIN

REACTIONS (17)
  - Meningitis [Unknown]
  - Atrial fibrillation [Unknown]
  - Cataract [Unknown]
  - Systemic lupus erythematosus [Unknown]
  - Nervous system disorder [Unknown]
  - Pneumonia [Unknown]
  - Food allergy [Recovered/Resolved]
  - Illness [Unknown]
  - Bacterial infection [Unknown]
  - COVID-19 [Unknown]
  - Product use issue [Unknown]
  - Product dose omission issue [Unknown]
  - Sinusitis [Recovered/Resolved]
  - Feeling abnormal [Unknown]
  - Infusion site pruritus [Unknown]
  - Headache [Unknown]
  - Incorrect drug administration rate [Unknown]

NARRATIVE: CASE EVENT DATE: 20231022
